FAERS Safety Report 12460496 (Version 1)
Quarter: 2016Q2

REPORT INFORMATION
  Report Type: Spontaneous
  Country: US (occurrence: US)
  Receive Date: 20160613
  Receipt Date: 20160613
  Transmission Date: 20160815
  Serious: No
  Sender: FDA-Public Use
  Company Number: US-PFIZER INC-2016286889

PATIENT
  Age: 45 Year
  Sex: Female

DRUGS (1)
  1. MANNITOL. [Suspect]
     Active Substance: MANNITOL
     Dosage: UNK

REACTIONS (1)
  - Drug hypersensitivity [Unknown]
